FAERS Safety Report 6552924-7 (Version None)
Quarter: 2010Q1

REPORT INFORMATION
  Report Type: 
  Country: None (occurrence: None)
  Receive Date: 20100122
  Receipt Date: 20100107
  Transmission Date: 20100710
  Serious: Yes (Other)
  Sender: FDA-Public Use
  Company Number: CAP10000026

PATIENT
  Age: 49 Year
  Sex: Female

DRUGS (2)
  1. ACTONEL [Suspect]
     Dosage: ONCE WEEKLY, ORAL
     Route: 048
  2. CALCIUM (CALCIUM) [Concomitant]

REACTIONS (4)
  - ARTHRALGIA [None]
  - BONE PAIN [None]
  - CHEST PAIN [None]
  - TINNITUS [None]
